FAERS Safety Report 9231346 (Version 1)
Quarter: 2013Q2

REPORT INFORMATION
  Report Type: Spontaneous
  Country: RO (occurrence: RO)
  Receive Date: 20130415
  Receipt Date: 20130415
  Transmission Date: 20140414
  Serious: Yes (Hospitalization)
  Sender: FDA-Public Use
  Company Number: RO-TEVA-396715ISR

PATIENT
  Age: 30 Year
  Sex: Male

DRUGS (2)
  1. CARBAMAZEPINE [Suspect]
     Dosage: 2000MG
  2. IBUPROFEN [Suspect]
     Dosage: 10 TABLETS
     Route: 048

REACTIONS (4)
  - Drug abuse [Recovered/Resolved]
  - Somnolence [Recovered/Resolved]
  - Psychomotor retardation [Recovered/Resolved]
  - Communication disorder [Recovered/Resolved]
